FAERS Safety Report 19165579 (Version 2)
Quarter: 2023Q1

REPORT INFORMATION
  Report Type: Spontaneous
  Country: CZ (occurrence: CZ)
  Receive Date: 20210421
  Receipt Date: 20230314
  Transmission Date: 20230417
  Serious: Yes (Life-Threatening, Hospitalization, Other)
  Sender: FDA-Public Use
  Company Number: None

PATIENT
  Age: 30 Year
  Sex: Female
  Weight: 72 kg

DRUGS (16)
  1. DIAZEPAM [Suspect]
     Active Substance: DIAZEPAM
     Indication: General anaesthesia
     Dosage: UNK, (APAURIN)
     Route: 065
     Dates: start: 20160621, end: 20160621
  2. PROPOFOL [Suspect]
     Active Substance: PROPOFOL
     Indication: General anaesthesia
     Dosage: DOSAGE FORM: EMULSION
     Route: 042
     Dates: start: 20160621, end: 20160621
  3. IBUPROFEN [Suspect]
     Active Substance: IBUPROFEN
     Indication: General anaesthesia
     Dosage: (RAPIFEN) (FORMULATION: INJECTION, SOLUTION)
     Route: 042
     Dates: start: 20160621, end: 20160621
  4. NOVALGIN (METAMIZOLE SODIUM) [Suspect]
     Active Substance: METAMIZOLE SODIUM
     Indication: General anaesthesia
     Dosage: UNK
     Route: 065
     Dates: start: 20160621, end: 20160621
  5. NOVALGIN (METAMIZOLE SODIUM) [Suspect]
     Active Substance: METAMIZOLE SODIUM
     Dosage: UNK
     Route: 065
     Dates: start: 20160621, end: 20160621
  6. NOVALGIN (METAMIZOLE SODIUM) [Suspect]
     Active Substance: METAMIZOLE SODIUM
     Dosage: UNK
     Route: 065
     Dates: start: 20160621, end: 20160621
  7. ATROPINE [Suspect]
     Active Substance: ATROPINE
     Indication: General anaesthesia
     Dosage: 1 ML
     Route: 065
     Dates: start: 20160621, end: 20160621
  8. ACETAMINOPHEN [Suspect]
     Active Substance: ACETAMINOPHEN
     Indication: General anaesthesia
     Dosage: 500 MG
     Route: 054
     Dates: start: 20160621, end: 20160621
  9. ACETAMINOPHEN [Suspect]
     Active Substance: ACETAMINOPHEN
     Dosage: 500 MG
     Route: 054
     Dates: start: 20160621, end: 20160621
  10. ACETAMINOPHEN [Suspect]
     Active Substance: ACETAMINOPHEN
     Dosage: 500 MG
     Route: 054
     Dates: start: 20160621, end: 20160621
  11. ALFENTANIL HYDROCHLORIDE [Suspect]
     Active Substance: ALFENTANIL HYDROCHLORIDE
     Indication: General anaesthesia
     Dosage: UNK
     Route: 042
     Dates: start: 20160621, end: 20160621
  12. SODIUM CHLORIDE [Suspect]
     Active Substance: SODIUM CHLORIDE
     Indication: General anaesthesia
     Dosage: UNK (0.9 % BRAUN)
     Route: 065
     Dates: start: 20160621, end: 20160621
  13. SODIUM CHLORIDE [Suspect]
     Active Substance: SODIUM CHLORIDE
     Indication: General anaesthesia
     Dosage: DOSAGE FORM: UNSPECIFIED (STRENGTH 0.9% ARDEAELYTOSOL F 1/1)
     Route: 065
     Dates: start: 20160621, end: 20160621
  14. SODIUM CHLORIDE [Suspect]
     Active Substance: SODIUM CHLORIDE
     Dosage: 0.9 % BRAUN
     Route: 065
     Dates: start: 20160621, end: 20160621
  15. MIDAZOLAM HYDROCHLORIDE [Suspect]
     Active Substance: MIDAZOLAM HYDROCHLORIDE
     Indication: General anaesthesia
     Dosage: DOSAGE FORM: UNSPECIFIED
     Route: 065
     Dates: start: 20160621, end: 20160621
  16. ATROPINE SULFATE [Suspect]
     Active Substance: ATROPINE SULFATE
     Indication: General anaesthesia
     Dosage: 1 ML, DOSAGE FORM: UNSPECIFIED (ATROPIN BIOTIKA 1 MG ATROPINE SULFATE MONOHYDRATE)
     Route: 065
     Dates: start: 20160621, end: 20160621

REACTIONS (9)
  - Haemoperitoneum [Recovered/Resolved]
  - Disseminated intravascular coagulation [Recovered/Resolved]
  - Abdominal pain [Recovered/Resolved]
  - Dyspnoea [Recovered/Resolved]
  - Dizziness [Recovered/Resolved]
  - Expired product administered [Unknown]
  - Product quality issue [Unknown]
  - Pleural effusion [Recovered/Resolved]
  - Vomiting [Recovered/Resolved]

NARRATIVE: CASE EVENT DATE: 20160601
